FAERS Safety Report 6240819-8 (Version None)
Quarter: 2009Q2

REPORT INFORMATION
  Report Type: 
  Country: None (occurrence: None)
  Receive Date: 20090623
  Receipt Date: 20090610
  Transmission Date: 20091009
  Serious: Yes (Hospitalization, Other)
  Sender: FDA-Public Use
  Company Number: US-ELI_LILLY_AND_COMPANY-US200906003430

PATIENT
  Sex: Female

DRUGS (4)
  1. FORTEO [Suspect]
     Dosage: UNK, UNK
     Dates: start: 20090101, end: 20090101
  2. CALCIUM [Concomitant]
  3. VITAMIN D [Concomitant]
  4. DIGOXIN [Concomitant]
     Dosage: UNK, UNK
     Dates: start: 20090501, end: 20090101

REACTIONS (9)
  - BLOOD CALCIUM INCREASED [None]
  - CARDIAC ENZYMES INCREASED [None]
  - CARDIOACTIVE DRUG LEVEL INCREASED [None]
  - DECREASED APPETITE [None]
  - DEHYDRATION [None]
  - HALLUCINATION [None]
  - MEDICAL DEVICE IMPLANTATION [None]
  - MYOCARDIAL INFARCTION [None]
  - NAUSEA [None]
